FAERS Safety Report 14873511 (Version 1)
Quarter: 2018Q2

REPORT INFORMATION
  Report Type: Spontaneous
  Country: US (occurrence: US)
  Receive Date: 20180510
  Receipt Date: 20180510
  Transmission Date: 20180711
  Serious: No
  Sender: FDA-Public Use
  Company Number: US-ASTRAZENECA-2018SE47005

PATIENT
  Sex: Female
  Weight: 83.5 kg

DRUGS (6)
  1. SPIRIVA [Concomitant]
     Active Substance: TIOTROPIUM BROMIDE MONOHYDRATE
     Indication: CHRONIC OBSTRUCTIVE PULMONARY DISEASE
     Route: 055
     Dates: start: 201606
  2. SYMBICORT [Suspect]
     Active Substance: BUDESONIDE\FORMOTEROL FUMARATE DIHYDRATE
     Indication: CHRONIC OBSTRUCTIVE PULMONARY DISEASE
     Dosage: 160/4.5 TWO TIMES A DAY
     Route: 055
     Dates: start: 201607
  3. VENTOLIN [Concomitant]
     Active Substance: ALBUTEROL SULFATE
     Indication: ILL-DEFINED DISORDER
     Route: 055
  4. ASPIRIN. [Concomitant]
     Active Substance: ASPIRIN
     Indication: DYSPNOEA
     Route: 048
     Dates: start: 201607
  5. CETIRTZINE [Concomitant]
     Indication: HYPERSENSITIVITY
     Route: 048
  6. ATORVASTATIN [Concomitant]
     Active Substance: ATORVASTATIN
     Indication: BLOOD CALCIUM
     Route: 048
     Dates: start: 201803

REACTIONS (5)
  - Dyspnoea [Unknown]
  - Memory impairment [Unknown]
  - Cardiac disorder [Unknown]
  - Eye disorder [Unknown]
  - Lacrimation increased [Unknown]
